FAERS Safety Report 25259958 (Version 2)
Quarter: 2025Q2

REPORT INFORMATION
  Report Type: Spontaneous
  Country: GB (occurrence: GB)
  Receive Date: 20250501
  Receipt Date: 20250512
  Transmission Date: 20250717
  Serious: Yes (Death, Life-Threatening, Other)
  Sender: MYLAN
  Company Number: None

PATIENT

DRUGS (1)
  1. PREGABALIN [Suspect]
     Active Substance: PREGABALIN
     Indication: Product used for unknown indication

REACTIONS (1)
  - Sudden death [Fatal]
